FAERS Safety Report 4821826-6 (Version None)
Quarter: 2005Q4

REPORT INFORMATION
  Report Type: 
  Country: None (occurrence: None)
  Receive Date: 20051102
  Receipt Date: 20051013
  Transmission Date: 20060501
  Serious: Yes (Other)
  Sender: FDA-Public Use
  Company Number: DE_051017200

PATIENT
  Sex: Male

DRUGS (3)
  1. CYMBALTA [Suspect]
     Indication: DEPRESSION
  2. ZIPRASIDONE [Concomitant]
  3. CALCIUM GLUCONATE [Concomitant]

REACTIONS (4)
  - ALKALOSIS [None]
  - HYPOCALCAEMIA [None]
  - HYPOKALAEMIA [None]
  - RENAL FAILURE [None]
